FAERS Safety Report 19935622 (Version 3)
Quarter: 2021Q4

REPORT INFORMATION
  Report Type: Spontaneous
  Country: US (occurrence: US)
  Receive Date: 20211008
  Receipt Date: 20211225
  Transmission Date: 20220303
  Serious: No
  Sender: FDA-Public Use
  Company Number: US-SA-SAC20211005001187

PATIENT
  Age: 49 Year
  Sex: Female

DRUGS (1)
  1. DUPIXENT [Suspect]
     Active Substance: DUPILUMAB
     Indication: Dermatitis atopic
     Dosage: 300 MG, QOW
     Route: 058
     Dates: start: 20210623

REACTIONS (5)
  - Weight increased [Unknown]
  - Vision blurred [Unknown]
  - Decreased immune responsiveness [Unknown]
  - Illness [Unknown]
  - Viral infection [Unknown]

NARRATIVE: CASE EVENT DATE: 20210101
